FAERS Safety Report 17910394 (Version 1)
Quarter: 2020Q2

REPORT INFORMATION
  Report Type: Spontaneous
  Country: GB (occurrence: GB)
  Receive Date: 20200618
  Receipt Date: 20200618
  Transmission Date: 20200714
  Serious: Yes (Life-Threatening, Disabling)
  Sender: FDA-Public Use
  Company Number: GB-LEO PHARMA-330063

PATIENT
  Age: 38 Year
  Sex: Female
  Weight: 56 kg

DRUGS (2)
  1. PROTOPIC [Suspect]
     Active Substance: TACROLIMUS
     Indication: ECZEMA
     Dosage: A ^THIN^ LAYER TO AFFECTED AREAS TWICE EACH DAY FOR 6 WEEKS
     Route: 061
     Dates: start: 20181030, end: 20200515
  2. EUMOVATE [Suspect]
     Active Substance: CLOBETASONE BUTYRATE
     Indication: ECZEMA
     Dosage: 2.5 FINGER TIP UNITS 2X A DAY TO FACE AND NECK
     Route: 061
     Dates: start: 20200311, end: 20200515

REACTIONS (3)
  - Fatigue [Unknown]
  - Drug withdrawal syndrome [Not Recovered/Not Resolved]
  - Pain [Unknown]

NARRATIVE: CASE EVENT DATE: 20200516
